FAERS Safety Report 6254101-6 (Version None)
Quarter: 2009Q3

REPORT INFORMATION
  Report Type: 
  Country: None (occurrence: None)
  Receive Date: 20090702
  Receipt Date: 20090623
  Transmission Date: 20100115
  Serious: Yes (Other)
  Sender: FDA-Public Use
  Company Number: PHHY2009IT26275

PATIENT
  Age: 29 Year
  Sex: Male

DRUGS (5)
  1. CYCLOSPORINE [Suspect]
     Indication: GLEICH'S SYNDROME
     Dosage: UNK
  2. MERCAPTOPURINE [Concomitant]
     Indication: GLEICH'S SYNDROME
     Dosage: 32 MG/DAY
  3. MERCAPTOPURINE [Concomitant]
     Dosage: 8 MG/DAY
  4. MERCAPTOPURINE [Concomitant]
     Dosage: 4 MG/DAY
  5. MERCAPTOPURINE [Concomitant]
     Dosage: 8 MG/DAY

REACTIONS (2)
  - DRUG INEFFECTIVE [None]
  - EOSINOPHIL COUNT INCREASED [None]
